FAERS Safety Report 21227612 (Version 1)
Quarter: 2022Q3

REPORT INFORMATION
  Report Type: Spontaneous
  Country: TR (occurrence: TR)
  Receive Date: 20220818
  Receipt Date: 20220818
  Transmission Date: 20221026
  Serious: Yes (Other)
  Sender: FDA-Public Use
  Company Number: TR-SUN PHARMACEUTICAL INDUSTRIES LTD-2022RR-349139

PATIENT
  Age: 20 Year
  Sex: Male

DRUGS (18)
  1. ESCITALOPRAM [Suspect]
     Active Substance: ESCITALOPRAM OXALATE
     Indication: Hallucinations, mixed
     Dosage: 10 MILLIGRAM, DAILY
     Route: 065
  2. ESCITALOPRAM [Suspect]
     Active Substance: ESCITALOPRAM OXALATE
     Indication: Psychomotor hyperactivity
  3. RISPERIDONE [Suspect]
     Active Substance: RISPERIDONE
     Indication: Psychomotor hyperactivity
     Dosage: 4 MILLIGRAM, DAILY
     Route: 065
  4. RISPERIDONE [Suspect]
     Active Substance: RISPERIDONE
     Indication: Hallucinations, mixed
  5. QUETIAPINE [Suspect]
     Active Substance: QUETIAPINE
     Indication: Psychomotor hyperactivity
     Dosage: 200 MILLIGRAM, DAILY
     Route: 065
  6. QUETIAPINE [Suspect]
     Active Substance: QUETIAPINE
     Indication: Hallucinations, mixed
  7. METOCLOPRAMIDE [Suspect]
     Active Substance: METOCLOPRAMIDE
     Indication: Aggression
     Dosage: 10 MILLIGRAM, DAILY
     Route: 030
  8. METOCLOPRAMIDE [Suspect]
     Active Substance: METOCLOPRAMIDE
     Indication: Psychomotor hyperactivity
  9. METOCLOPRAMIDE [Suspect]
     Active Substance: METOCLOPRAMIDE
     Indication: Hallucinations, mixed
  10. HALOPERIDOL [Suspect]
     Active Substance: HALOPERIDOL
     Indication: Aggression
     Dosage: 10 MILLIGRAM, DAILY
     Route: 065
  11. HALOPERIDOL [Suspect]
     Active Substance: HALOPERIDOL
     Indication: Psychomotor hyperactivity
  12. HALOPERIDOL [Suspect]
     Active Substance: HALOPERIDOL
     Indication: Hallucinations, mixed
  13. CHLORPROMAZINE [Suspect]
     Active Substance: CHLORPROMAZINE
     Indication: Aggression
     Dosage: 25 MILLIGRAM, DAILY
     Route: 065
  14. CHLORPROMAZINE [Suspect]
     Active Substance: CHLORPROMAZINE
     Indication: Psychomotor hyperactivity
  15. CHLORPROMAZINE [Suspect]
     Active Substance: CHLORPROMAZINE
     Indication: Hallucinations, mixed
  16. BIPERIDEN [Suspect]
     Active Substance: BIPERIDEN
     Indication: Aggression
     Dosage: 5 MILLIGRAM, DAILY
     Route: 065
  17. BIPERIDEN [Suspect]
     Active Substance: BIPERIDEN
     Indication: Psychomotor hyperactivity
  18. BIPERIDEN [Suspect]
     Active Substance: BIPERIDEN
     Indication: Hallucinations, mixed

REACTIONS (3)
  - Drug ineffective [Unknown]
  - Extrapyramidal disorder [Unknown]
  - Condition aggravated [Unknown]
